FAERS Safety Report 6832091-2 (Version None)
Quarter: 2010Q3

REPORT INFORMATION
  Report Type: 
  Country: None (occurrence: None)
  Receive Date: 20100712
  Receipt Date: 20100701
  Transmission Date: 20110219
  Serious: Yes (Hospitalization)
  Sender: FDA-Public Use
  Company Number: US-ROCHE-713982

PATIENT
  Sex: Female

DRUGS (4)
  1. BEVACIZUMAB [Suspect]
     Dosage: FREQUENCY: OVER 30-90 MINUTES ON DAYS 1 AND 15. CYCLE= 28 DAYS. FIRST COURSE.
     Route: 042
     Dates: start: 20091203
  2. BEVACIZUMAB [Suspect]
     Dosage: FREQUENCY: OVER 30-90 MINUTES ON DAYS 1 AND 15. CYCLE= 28 DAYS. COURSE NO: 4
     Route: 042
     Dates: start: 20100305
  3. TEMSIROLIMUS [Suspect]
     Dosage: FREQUENCY: ON DAYS 1, 8, 15, 22. CYCLE=28 DAYS. FIRST COURSE.
     Route: 042
     Dates: start: 20091203
  4. TEMSIROLIMUS [Suspect]
     Dosage: FREQUENCY: ON DAYS 1, 8, 15, 22. CYCLE=28 DAYS. FOURTH COURSE.
     Route: 042
     Dates: start: 20100305

REACTIONS (1)
  - PNEUMONITIS [None]
